FAERS Safety Report 9589655 (Version 1)
Quarter: 2013Q4

REPORT INFORMATION
  Report Type: Spontaneous
  Country: US (occurrence: US)
  Receive Date: 20131003
  Receipt Date: 20131003
  Transmission Date: 20140711
  Serious: No
  Sender: FDA-Public Use
  Company Number: US-AMGEN-USASP2012071184

PATIENT
  Age: 57 Year
  Sex: Female
  Weight: 81.63 kg

DRUGS (6)
  1. ENBREL [Suspect]
     Indication: PSORIASIS
     Dosage: 50 MG, QWK
     Route: 058
  2. HUMIRA [Concomitant]
     Dosage: 40 MG/0.8, UNK
     Route: 058
  3. BABY ASPIRIN [Concomitant]
     Dosage: 81 MG, UNK
     Route: 048
  4. PROAIR HFA [Concomitant]
     Dosage: UNK
  5. ADVAIR [Concomitant]
     Dosage: 100/50 IN
  6. SINGULAIR [Concomitant]
     Dosage: 10 MG, UNK
     Route: 048

REACTIONS (2)
  - Drug ineffective [Unknown]
  - Psoriasis [Unknown]
